FAERS Safety Report 18899661 (Version 1)
Quarter: 2021Q1

REPORT INFORMATION
  Report Type: Report from Study
  Country: US (occurrence: US)
  Receive Date: 20210216
  Receipt Date: 20210216
  Transmission Date: 20210420
  Serious: Yes (Other)
  Sender: FDA-Public Use
  Company Number: US-PFIZER INC-2021119704

PATIENT
  Age: 68 Year
  Sex: Male

DRUGS (1)
  1. SULFASALAZINE. [Suspect]
     Active Substance: SULFASALAZINE
     Indication: GRANULOMA ANNULARE
     Dosage: UNK (INITIATED AT 500 MG DAILY TO 1 G TWICE DAILY; DEPENDENT ON TOLERANCE AND EFFICACY, DOSES WERE A

REACTIONS (1)
  - Neutropenia [Unknown]
